FAERS Safety Report 10645755 (Version 1)
Quarter: 2014Q4

REPORT INFORMATION
  Report Type: Report from Study
  Country: BR (occurrence: BR)
  Receive Date: 20141211
  Receipt Date: 20141211
  Transmission Date: 20150529
  Serious: Yes (Other)
  Sender: FDA-Public Use
  Company Number: PHHY2014BR160007

PATIENT
  Sex: Female
  Weight: 63.5 kg

DRUGS (6)
  1. BCG [Concomitant]
     Active Substance: BCG VACCINE
     Indication: PRODUCT USED FOR UNKNOWN INDICATION
     Route: 065
  2. PANTOPRAZOLE [Concomitant]
     Active Substance: PANTOPRAZOLE SODIUM
     Indication: GASTRITIS
     Route: 065
  3. DIAZEPAN [Concomitant]
     Indication: HEAD DISCOMFORT
     Route: 065
  4. SIMVASTATIN. [Suspect]
     Active Substance: SIMVASTATIN
     Indication: HEPATIC STEATOSIS
     Dosage: 20 MG, QD
     Route: 048
     Dates: end: 2013
  5. PURAN [Concomitant]
     Active Substance: LEVOTHYROXINE SODIUM
     Indication: THYROID DISORDER
     Dosage: 100 MG, QD
     Route: 048
     Dates: start: 20050801
  6. ANGIPRESS CD [Concomitant]
     Active Substance: ATENOLOL\CHLORTHALIDONE
     Indication: HYPERTENSION
     Dosage: 50/12.5 MG
     Route: 065

REACTIONS (6)
  - Blood cholesterol increased [Unknown]
  - Ear disorder [Recovering/Resolving]
  - Liver disorder [Recovering/Resolving]
  - Thyroid cancer [Recovering/Resolving]
  - Thyroid mass [Recovering/Resolving]
  - Head discomfort [Unknown]
